FAERS Safety Report 6865352-1 (Version None)
Quarter: 2010Q3

REPORT INFORMATION
  Report Type: 
  Country: None (occurrence: None)
  Receive Date: 20100721
  Receipt Date: 20080421
  Transmission Date: 20110219
  Serious: No
  Sender: FDA-Public Use
  Company Number: US-PFIZER INC-2008036042

PATIENT
  Sex: Female
  Weight: 81.8 kg

DRUGS (2)
  1. CHANTIX [Suspect]
     Indication: SMOKING CESSATION THERAPY
  2. TYLENOL [Concomitant]

REACTIONS (9)
  - ANXIETY [None]
  - CRYING [None]
  - FEAR [None]
  - FEELING ABNORMAL [None]
  - HEADACHE [None]
  - INSOMNIA [None]
  - NAUSEA [None]
  - PALPITATIONS [None]
  - TINNITUS [None]
